FAERS Safety Report 15468495 (Version 5)
Quarter: 2019Q4

REPORT INFORMATION
  Report Type: Report from Study
  Country: JP (occurrence: JP)
  Receive Date: 20181005
  Receipt Date: 20191125
  Transmission Date: 20200122
  Serious: Yes (Death, Hospitalization, Other)
  Sender: FDA-Public Use
  Company Number: JP-SA-2018SA272573

PATIENT
  Age: 76 Year
  Sex: Male
  Weight: 60 kg

DRUGS (33)
  1. DUPILUMAB [Suspect]
     Active Substance: DUPILUMAB
     Dosage: 600 MG, 1X
     Route: 058
     Dates: start: 20180903, end: 20180903
  2. ARUSONA [Concomitant]
     Indication: DERMATITIS ATOPIC
     Dosage: UNK UNK, QD
     Route: 061
     Dates: start: 201806, end: 20180918
  3. HIRUDOID [Concomitant]
     Active Substance: GLYCOSAMINOGLYCANS
     Indication: DERMATITIS ATOPIC
     Dosage: UNK UNK, QD
     Route: 061
     Dates: start: 20180919, end: 20181028
  4. LIDOMEX [Concomitant]
     Active Substance: PREDNISOLONE VALERATE ACETATE
     Indication: DERMATITIS ATOPIC
     Dosage: UNK UNK, QD
     Route: 061
     Dates: start: 20180919, end: 20181028
  5. DEPAKENE-R [Concomitant]
     Active Substance: VALPROATE SODIUM
     Indication: PRODUCT USED FOR UNKNOWN INDICATION
     Dosage: 300 MG, QD
     Route: 065
     Dates: start: 20150924
  6. BAYASPIRIN [Concomitant]
     Active Substance: ASPIRIN
     Indication: PRODUCT USED FOR UNKNOWN INDICATION
     Dosage: 100 MG, QD
     Route: 065
     Dates: start: 20130528
  7. DUPILUMAB [Suspect]
     Active Substance: DUPILUMAB
     Dosage: 300 MG, 1X
     Route: 058
     Dates: start: 20190304, end: 20190304
  8. DUPILUMAB [Suspect]
     Active Substance: DUPILUMAB
     Dosage: 300 MG, QOW
     Route: 058
     Dates: start: 20190325, end: 20190408
  9. BESOFTEN [Concomitant]
     Active Substance: PENTOSAN POLYSULFATE SODIUM
     Indication: DERMATITIS ATOPIC
     Dosage: UNK UNK, QD
     Route: 061
     Dates: start: 201710, end: 20180918
  10. PASTARON [Concomitant]
     Active Substance: UREA
     Indication: DERMATITIS ATOPIC
     Dosage: UNK UNK, QD
     Route: 061
     Dates: start: 201710, end: 20180918
  11. METHADERM [Concomitant]
     Active Substance: DEXAMETHASONE DIPROPIONATE
     Indication: DERMATITIS ATOPIC
     Dosage: UNK UNK, QD
     Route: 061
     Dates: start: 20180919, end: 20181028
  12. LIVOSTIN [Concomitant]
     Active Substance: LEVOCABASTINE HYDROCHLORIDE
     Indication: PRODUCT USED FOR UNKNOWN INDICATION
     Dosage: UNK
     Route: 047
     Dates: start: 20160201, end: 20181028
  13. DUPILUMAB [Suspect]
     Active Substance: DUPILUMAB
     Dosage: 300 MG, QOW
     Route: 058
     Dates: start: 20181126, end: 20181210
  14. HIRUDOID [Concomitant]
     Active Substance: GLYCOSAMINOGLYCANS
     Dosage: SEVERAL TIMES PER WEEK
     Route: 065
     Dates: start: 20181029, end: 20181115
  15. MUCOSOLVAN [Concomitant]
     Active Substance: AMBROXOL HYDROCHLORIDE
     Indication: PRODUCT USED FOR UNKNOWN INDICATION
     Dosage: 15 MG, QD
     Route: 065
     Dates: start: 20140203
  16. LOCOID [Concomitant]
     Active Substance: HYDROCORTISONE BUTYRATE
     Indication: DERMATITIS ATOPIC
     Dosage: UNK UNK, QD
     Route: 061
     Dates: start: 201806, end: 20181028
  17. MAGNESIUM OXIDE. [Concomitant]
     Active Substance: MAGNESIUM OXIDE
     Indication: PRODUCT USED FOR UNKNOWN INDICATION
     Dosage: 330 MG, QD
     Route: 065
     Dates: start: 20170215
  18. DUPILUMAB [Suspect]
     Active Substance: DUPILUMAB
     Dosage: 300 MG, 1X
     Route: 058
     Dates: start: 20180919, end: 20180919
  19. DUPILUMAB [Suspect]
     Active Substance: DUPILUMAB
     Dosage: 300 MG, QOW
     Route: 058
     Dates: start: 20190107, end: 20190204
  20. DUPILUMAB [Suspect]
     Active Substance: DUPILUMAB
     Dosage: 300 MG, 1X
     Route: 058
     Dates: start: 20190426, end: 20190426
  21. PROPETO [Concomitant]
     Active Substance: PETROLATUM
     Indication: DERMATITIS ATOPIC
     Dosage: UNK UNK, QD
     Route: 061
     Dates: start: 201710, end: 20180918
  22. DUPILUMAB [Suspect]
     Active Substance: DUPILUMAB
     Dosage: 300 MG, 1X
     Route: 058
     Dates: start: 20181115, end: 20181115
  23. DUPILUMAB [Suspect]
     Active Substance: DUPILUMAB
     Dosage: 300 MG, 1X
     Route: 058
     Dates: start: 20181227, end: 20181227
  24. NERISONA [Concomitant]
     Active Substance: DIFLUCORTOLONE VALERATE
     Indication: DERMATITIS ATOPIC
     Dosage: QD
     Route: 061
     Dates: start: 201710, end: 20180918
  25. LUCONAC [Concomitant]
     Indication: PRODUCT USED FOR UNKNOWN INDICATION
     Dosage: UNK
     Route: 065
     Dates: start: 20180301, end: 20180918
  26. CRESTOR [Concomitant]
     Active Substance: ROSUVASTATIN CALCIUM
     Indication: PRODUCT USED FOR UNKNOWN INDICATION
     Dosage: 2.5 MG, QD
     Route: 065
     Dates: start: 20130612
  27. DUPILUMAB [Suspect]
     Active Substance: DUPILUMAB
     Dosage: 300 MG, 1X
     Route: 058
     Dates: start: 20190220, end: 20190220
  28. MEMARY [Concomitant]
     Active Substance: MEMANTINE HYDROCHLORIDE
     Indication: PRODUCT USED FOR UNKNOWN INDICATION
     Dosage: 20 MG, QD
     Route: 065
     Dates: start: 20150924
  29. HACHIMIJIOGAN [Concomitant]
     Active Substance: HERBALS
     Indication: PRODUCT USED FOR UNKNOWN INDICATION
     Dosage: 2.5 G, QD
     Route: 065
     Dates: start: 20131226
  30. YOKUKANSAN [Concomitant]
     Active Substance: HERBALS
     Indication: PRODUCT USED FOR UNKNOWN INDICATION
     Dosage: 5 G, QD
     Route: 065
     Dates: start: 20150925
  31. DUPILUMAB [Suspect]
     Active Substance: DUPILUMAB
     Indication: DERMATITIS ATOPIC
     Dosage: 300 MG, QOW
     Route: 058
     Dates: start: 20181001, end: 20181029
  32. DUPILUMAB [Suspect]
     Active Substance: DUPILUMAB
     Dosage: 300 MG, 1X
     Route: 058
     Dates: start: 20190606, end: 20190606
  33. HIRUDOID [Concomitant]
     Active Substance: GLYCOSAMINOGLYCANS
     Dosage: SEVERAL TIMES PER WEEK
     Route: 065
     Dates: start: 20181115, end: 20181226

REACTIONS (4)
  - Malignant neoplasm progression [Fatal]
  - Conjunctivitis allergic [Recovering/Resolving]
  - Pneumonia pneumococcal [Recovering/Resolving]
  - Pneumococcal bacteraemia [Recovering/Resolving]

NARRATIVE: CASE EVENT DATE: 20181001
